FAERS Safety Report 14419435 (Version 2)
Quarter: 2019Q3

REPORT INFORMATION
  Report Type: Report from Study
  Country: JP (occurrence: JP)
  Receive Date: 20180122
  Receipt Date: 20190808
  Transmission Date: 20191004
  Serious: Yes (Other)
  Sender: FDA-Public Use
  Company Number: JP-ASTELLAS-2018US004201

PATIENT

DRUGS (2)
  1. DOCETAXEL. [Suspect]
     Active Substance: DOCETAXEL
     Indication: NON-SMALL CELL LUNG CANCER RECURRENT
     Route: 042
  2. ERLOTINIB [Suspect]
     Active Substance: ERLOTINIB
     Indication: NON-SMALL CELL LUNG CANCER RECURRENT
     Route: 048

REACTIONS (18)
  - Decreased appetite [Unknown]
  - Infection [Unknown]
  - Hyponatraemia [Unknown]
  - Pyrexia [Unknown]
  - Dermatitis acneiform [Unknown]
  - Anaemia [Unknown]
  - Mucosal inflammation [Unknown]
  - Fatigue [Unknown]
  - Alanine aminotransferase increased [Unknown]
  - Hypokalaemia [Unknown]
  - Diarrhoea [Unknown]
  - Hyperkalaemia [Unknown]
  - Febrile neutropenia [Unknown]
  - Stomatitis [Unknown]
  - Vomiting [Unknown]
  - Neutropenia [Unknown]
  - Leukopenia [Unknown]
  - Aspartate aminotransferase increased [Unknown]
